FAERS Safety Report 4550483-1 (Version None)
Quarter: 2004Q4

REPORT INFORMATION
  Report Type: 
  Country: None (occurrence: None)
  Receive Date: 20041227
  Receipt Date: 20041117
  Transmission Date: 20050328
  Serious: No
  Sender: FDA-Public Use
  Company Number: 04P-163-0280781-00

PATIENT
  Age: 51 Year
  Sex: Female
  Weight: 77.1115 kg

DRUGS (12)
  1. HUMIRA [Suspect]
     Indication: RHEUMATOID ARTHRITIS
     Dosage: 40MG 1 IN 2 WK SUBCUTANEOUS
     Route: 058
     Dates: start: 20041116
  2. CELECOXIB [Concomitant]
  3. CETIRIZINE [Concomitant]
  4. HYDROCHLOROTHIAZIDE [Concomitant]
  5. ESOMEPRAZOLE [Concomitant]
  6. TRAZODONE [Concomitant]
  7. VENLAFAXINE HCL [Concomitant]
  8. LEVOTHYROXINE SODIUM [Concomitant]
  9. PREDNISONE [Concomitant]
  10. METAXALONE [Concomitant]
  11. FOLIC ACID [Concomitant]
  12. METHOTREXATE [Concomitant]

REACTIONS (2)
  - INFLUENZA LIKE ILLNESS [None]
  - PLATELET COUNT DECREASED [None]
